FAERS Safety Report 13235857 (Version 1)
Quarter: 2017Q1

REPORT INFORMATION
  Report Type: Spontaneous
  Country: None (occurrence: US)
  Receive Date: 20170215
  Receipt Date: 20170215
  Transmission Date: 20170428
  Serious: No
  Sender: FDA-Public Use
  Company Number: US-RARE DISEASE THERAPEUTICS, INC.-1063117

PATIENT
  Age: 13 Year
  Sex: Male
  Weight: 51.71 kg

DRUGS (3)
  1. ACETYLSALICYLIC ACID [Concomitant]
     Active Substance: ASPIRIN
  2. CYSTADANE [Suspect]
     Active Substance: BETAINE
     Indication: HOMOCYSTINURIA
     Dates: start: 2003
  3. CYSTADANE [Suspect]
     Active Substance: BETAINE
     Dates: start: 20140716

REACTIONS (3)
  - Influenza [Recovered/Resolved]
  - Overdose [None]
  - Drug dose omission [None]

NARRATIVE: CASE EVENT DATE: 20170121
